FAERS Safety Report 20741258 (Version 8)
Quarter: 2022Q3

REPORT INFORMATION
  Report Type: Report from Study
  Country: CN (occurrence: CN)
  Receive Date: 20220422
  Receipt Date: 20220922
  Transmission Date: 20221026
  Serious: Yes (Hospitalization)
  Sender: FDA-Public Use
  Company Number: CN-JNJFOC-20220433929

PATIENT
  Age: 52 Year
  Sex: Female
  Weight: 75.5 kg

DRUGS (32)
  1. AMIVANTAMAB [Suspect]
     Active Substance: AMIVANTAMAB
     Indication: Non-small cell lung cancer metastatic
     Dosage: MOST RECENT DOSE ON 14-APR-2022;
     Route: 042
     Dates: start: 20220303
  2. AMIVANTAMAB [Suspect]
     Active Substance: AMIVANTAMAB
     Dosage: C1D1
     Route: 042
     Dates: start: 20220303, end: 20220303
  3. AMIVANTAMAB [Suspect]
     Active Substance: AMIVANTAMAB
     Dosage: C1D2
     Route: 042
     Dates: start: 20220304, end: 20220304
  4. AMIVANTAMAB [Suspect]
     Active Substance: AMIVANTAMAB
     Dosage: C1D8
     Route: 042
     Dates: start: 20220310, end: 20220310
  5. AMIVANTAMAB [Suspect]
     Active Substance: AMIVANTAMAB
     Dosage: C1D15
     Route: 042
     Dates: start: 20220317, end: 20220317
  6. AMIVANTAMAB [Suspect]
     Active Substance: AMIVANTAMAB
     Dosage: C1D22
     Route: 042
     Dates: start: 20220324, end: 20220324
  7. AMIVANTAMAB [Suspect]
     Active Substance: AMIVANTAMAB
     Dosage: C2D1
     Route: 042
     Dates: start: 20220401, end: 20220401
  8. AMIVANTAMAB [Suspect]
     Active Substance: AMIVANTAMAB
     Dosage: C2D15
     Route: 042
     Dates: start: 20220414, end: 20220414
  9. AMIVANTAMAB [Suspect]
     Active Substance: AMIVANTAMAB
     Dosage: C2D15
     Route: 042
     Dates: start: 20220427, end: 20220427
  10. ACETYLCYSTEINE TABLETS [Concomitant]
     Indication: Cough
     Route: 048
     Dates: start: 20220413, end: 20220513
  11. FUROSEMIDE INJ [Concomitant]
     Indication: Generalised oedema
     Route: 058
     Dates: start: 20220413, end: 20220419
  12. FUROSEMIDE INJ [Concomitant]
     Route: 042
     Dates: start: 20220428, end: 20220601
  13. ESTAZOLAM [Concomitant]
     Active Substance: ESTAZOLAM
     Indication: Insomnia
     Route: 048
     Dates: start: 20220413, end: 20220417
  14. ESTAZOLAM [Concomitant]
     Active Substance: ESTAZOLAM
     Route: 048
     Dates: start: 20220517
  15. MAGNESIUM ISOGLYCYRRHIZINATE [Concomitant]
     Active Substance: MAGNESIUM ISOGLYCYRRHIZINATE
     Indication: Alanine aminotransferase increased
     Route: 042
     Dates: start: 20220414, end: 20220419
  16. MAGNESIUM ISOGLYCYRRHIZINATE [Concomitant]
     Active Substance: MAGNESIUM ISOGLYCYRRHIZINATE
     Indication: Prophylaxis
     Route: 042
     Dates: start: 20220428, end: 20220525
  17. MAGNESIUM ISOGLYCYRRHIZINATE [Concomitant]
     Active Substance: MAGNESIUM ISOGLYCYRRHIZINATE
     Indication: Blood alkaline phosphatase increased
     Route: 042
     Dates: start: 20220526, end: 20220529
  18. MAGNESIUM ISOGLYCYRRHIZINATE [Concomitant]
     Active Substance: MAGNESIUM ISOGLYCYRRHIZINATE
     Indication: Enzyme level increased
  19. IMRECOXIB [Concomitant]
     Active Substance: IMRECOXIB
     Indication: Myalgia
     Route: 048
     Dates: start: 20220305, end: 20220505
  20. IMRECOXIB [Concomitant]
     Active Substance: IMRECOXIB
     Route: 048
     Dates: start: 20220428, end: 20220618
  21. COMPOUND CODEINE ORAL LIQUID(CODEINE PHOSPHATE EPHEDRINE HYDROCHLORIDE [Concomitant]
     Indication: Cough
     Route: 048
     Dates: start: 20220310
  22. COMPOUND CODEINE ORAL LIQUID(CODEINE PHOSPHATE EPHEDRINE HYDROCHLORIDE [Concomitant]
     Route: 048
     Dates: start: 20220419, end: 20220422
  23. COMPOUND CODEINE ORAL LIQUID(CODEINE PHOSPHATE EPHEDRINE HYDROCHLORIDE [Concomitant]
     Route: 048
     Dates: start: 20220503, end: 20220524
  24. MUPIROCIN [Concomitant]
     Active Substance: MUPIROCIN
     Indication: Rash
     Route: 061
     Dates: start: 20220314, end: 20220501
  25. AMBROXOL HYDROCHLORIDE [Concomitant]
     Active Substance: AMBROXOL HYDROCHLORIDE
     Indication: Cough
     Route: 058
     Dates: start: 20220413, end: 20220419
  26. AMBROXOL HYDROCHLORIDE [Concomitant]
     Active Substance: AMBROXOL HYDROCHLORIDE
     Route: 042
     Dates: start: 20220529, end: 20220529
  27. AMINO ACIDS, SOURCE UNSPECIFIED [Concomitant]
     Active Substance: AMINO ACIDS, SOURCE UNSPECIFIED
     Indication: Decreased appetite
     Route: 042
     Dates: start: 20220414, end: 20220419
  28. COMPOUND SODIUM ACETATE INJECTION [Concomitant]
     Indication: Decreased appetite
     Route: 042
     Dates: start: 20220414, end: 20220419
  29. LONG CHAIN FATTY ACID MILK INJECTION [Concomitant]
     Indication: Decreased appetite
     Route: 042
     Dates: start: 20220414, end: 20220419
  30. COMPOUND DIGESTIVE ENZYME CAPSULE [Concomitant]
     Indication: Dyspepsia
     Route: 048
     Dates: start: 20220419, end: 20220419
  31. COMPOUND DIGESTIVE ENZYME CAPSULE [Concomitant]
     Route: 048
     Dates: start: 20220511, end: 20220620
  32. GLUTATHIONE [Concomitant]
     Active Substance: GLUTATHIONE
     Indication: Aspartate aminotransferase increased
     Route: 042
     Dates: start: 20220428, end: 20220518

REACTIONS (3)
  - Hypoalbuminaemia [Recovering/Resolving]
  - Pericardial effusion [Recovered/Resolved]
  - Pleural effusion [Recovered/Resolved]

NARRATIVE: CASE EVENT DATE: 20220413
